FAERS Safety Report 14477034 (Version 1)
Quarter: 2018Q1

REPORT INFORMATION
  Report Type: Report from Study
  Country: US (occurrence: US)
  Receive Date: 20180201
  Receipt Date: 20180201
  Transmission Date: 20180509
  Serious: No
  Sender: FDA-Public Use
  Company Number: US-EXELIXIS-CABO-17009423

PATIENT
  Age: 68 Year
  Sex: Male

DRUGS (7)
  1. CETRIZINE [Concomitant]
     Active Substance: CETIRIZINE HYDROCHLORIDE
  2. SUDAFED [Concomitant]
     Active Substance: PSEUDOEPHEDRINE HYDROCHLORIDE
  3. CABOMETYX [Suspect]
     Active Substance: CABOZANTINIB S-MALATE
     Dosage: 20 MG, QD
     Route: 048
     Dates: start: 201707
  4. INSULIN [Concomitant]
     Active Substance: INSULIN NOS
  5. DILTIAZEM. [Concomitant]
     Active Substance: DILTIAZEM
  6. CABOMETYX [Suspect]
     Active Substance: CABOZANTINIB S-MALATE
     Indication: RENAL CANCER
     Dosage: 60 MG, QD
     Route: 048
     Dates: start: 20170512, end: 2017
  7. CABOMETYX [Suspect]
     Active Substance: CABOZANTINIB S-MALATE
     Dosage: 60 MG, QD, 120 MG EVERY 3 DAYS
     Route: 048
     Dates: start: 2017, end: 201707

REACTIONS (11)
  - Flushing [Unknown]
  - Aphthous ulcer [Unknown]
  - Fatigue [Unknown]
  - Headache [Unknown]
  - Blood pressure increased [Unknown]
  - Constipation [Unknown]
  - Arthralgia [Unknown]
  - Neutropenia [Not Recovered/Not Resolved]
  - Dyspnoea [Unknown]
  - Influenza like illness [Unknown]
  - Neuropathy peripheral [Unknown]

NARRATIVE: CASE EVENT DATE: 201705
